FAERS Safety Report 8393081-4 (Version None)
Quarter: 2012Q2

REPORT INFORMATION
  Report Type: 
  Country: None (occurrence: None)
  Receive Date: 20120529
  Receipt Date: 20120402
  Transmission Date: 20120825
  Serious: No
  Sender: FDA-Public Use
  Company Number: US-ABBOTT-12P-163-0922601-00

PATIENT
  Sex: Male
  Weight: 145.28 kg

DRUGS (8)
  1. GLUCOSAMINE CHONDROITIN [Concomitant]
     Indication: PRODUCT USED FOR UNKNOWN INDICATION
  2. ANDROGEL [Suspect]
     Indication: BLOOD TESTOSTERONE DECREASED
     Dosage: 1 PUMP DAILY
     Route: 061
     Dates: start: 20120320, end: 20120329
  3. FLECAINIDE ACETATE [Concomitant]
     Indication: HEART RATE INCREASED
  4. UNKNOWN OTHER VITAMINS [Concomitant]
     Indication: PRODUCT USED FOR UNKNOWN INDICATION
  5. METOPROLOL TARTRATE [Concomitant]
     Indication: HEART RATE INCREASED
  6. VITAMIN C [Concomitant]
     Indication: PRODUCT USED FOR UNKNOWN INDICATION
  7. GARLIC [Concomitant]
     Indication: PRODUCT USED FOR UNKNOWN INDICATION
  8. FISH OIL [Concomitant]
     Indication: PRODUCT USED FOR UNKNOWN INDICATION

REACTIONS (7)
  - HEART RATE INCREASED [None]
  - CHEST PAIN [None]
  - FEELING ABNORMAL [None]
  - EXTRASYSTOLES [None]
  - HEART RATE DECREASED [None]
  - PALPITATIONS [None]
  - ASTHENIA [None]
